FAERS Safety Report 10665175 (Version 1)
Quarter: 2014Q4

REPORT INFORMATION
  Report Type: Spontaneous
  Country: GB (occurrence: GB)
  Receive Date: 20141219
  Receipt Date: 20141219
  Transmission Date: 20150529
  Serious: Yes (Death, Other)
  Sender: FDA-Public Use
  Company Number: PHHY2011GB41795

PATIENT
  Sex: Male

DRUGS (3)
  1. CANDESARTAN CILEXETIL. [Suspect]
     Active Substance: CANDESARTAN CILEXETIL
     Indication: PRODUCT USED FOR UNKNOWN INDICATION
     Dosage: UNK UKN, UNK
     Route: 064
  2. SALBUTAMOL [Suspect]
     Active Substance: ALBUTEROL
     Indication: PRODUCT USED FOR UNKNOWN INDICATION
     Dosage: UNK UKN, UNK
     Route: 064
  3. BECLOMETASONE [Suspect]
     Active Substance: BECLOMETHASONE DIPROPIONATE
     Indication: PRODUCT USED FOR UNKNOWN INDICATION
     Dosage: UNK UKN, UNK
     Route: 064

REACTIONS (14)
  - Bladder disorder [Fatal]
  - General physical health deterioration [Fatal]
  - Neonatal hypotension [Fatal]
  - Anuria [Fatal]
  - Foetal growth restriction [Fatal]
  - Hypospadias [Fatal]
  - Skull malformation [Fatal]
  - Joint contracture [Fatal]
  - Single functional kidney [Fatal]
  - Vertical talus [Fatal]
  - Foetal exposure during pregnancy [Unknown]
  - Premature baby [Fatal]
  - Low birth weight baby [Fatal]
  - Renal disorder [Fatal]
